FAERS Safety Report 6094891-9 (Version None)
Quarter: 2009Q1

REPORT INFORMATION
  Report Type: 
  Country: None (occurrence: None)
  Receive Date: 20090225
  Receipt Date: 20070820
  Transmission Date: 20090719
  Serious: Yes (Hospitalization)
  Sender: FDA-Public Use
  Company Number: WAES0510USA05637

PATIENT
  Age: 59 Year
  Sex: Male

DRUGS (1)
  1. INDOMETHACIN [Suspect]
     Indication: GOUT

REACTIONS (16)
  - ABDOMINAL DISCOMFORT [None]
  - BLOOD CREATINE INCREASED [None]
  - BLOOD GLUCOSE INCREASED [None]
  - BLOOD POTASSIUM INCREASED [None]
  - BLOOD UREA INCREASED [None]
  - BLOOD URIC ACID INCREASED [None]
  - BRAIN NATRIURETIC PEPTIDE INCREASED [None]
  - CARDIOMEGALY [None]
  - CHEST DISCOMFORT [None]
  - DYSPNOEA [None]
  - DYSURIA [None]
  - ELECTROCARDIOGRAM REPOLARISATION ABNORMALITY [None]
  - LEFT VENTRICULAR HYPERTROPHY [None]
  - LIMB DISCOMFORT [None]
  - PO2 DECREASED [None]
  - TROPONIN I INCREASED [None]
